FAERS Safety Report 17077283 (Version 1)
Quarter: 2019Q4

REPORT INFORMATION
  Report Type: Spontaneous
  Country: US (occurrence: US)
  Receive Date: 20191126
  Receipt Date: 20191126
  Transmission Date: 20200122
  Serious: Yes (Other)
  Sender: FDA-Public Use
  Company Number: US-AMGEN-USASP2019195312

PATIENT
  Age: 87 Year
  Sex: Female

DRUGS (1)
  1. PROLIA [Suspect]
     Active Substance: DENOSUMAB
     Indication: OSTEOPOROSIS POSTMENOPAUSAL
     Dosage: 60 MILLIGRAM, Q6MO
     Route: 065

REACTIONS (8)
  - Insomnia [Unknown]
  - Arthralgia [Unknown]
  - Pain in extremity [Unknown]
  - Back pain [Not Recovered/Not Resolved]
  - Urinary retention [Unknown]
  - Flushing [Unknown]
  - Dental restoration failure [Unknown]
  - Myalgia [Unknown]

NARRATIVE: CASE EVENT DATE: 2019
